FAERS Safety Report 6660122-1 (Version None)
Quarter: 2010Q1

REPORT INFORMATION
  Report Type: 
  Country: None (occurrence: None)
  Receive Date: 20100331
  Receipt Date: 20100224
  Transmission Date: 20100710
  Serious: Yes (Hospitalization)
  Sender: FDA-Public Use
  Company Number: 2009BI006379

PATIENT
  Age: 34 Year
  Sex: Female

DRUGS (1)
  1. TYSABRI [Suspect]
     Indication: MULTIPLE SCLEROSIS
     Route: 042
     Dates: start: 20080714

REACTIONS (5)
  - CENTRAL NERVOUS SYSTEM LESION [None]
  - HYPERSENSITIVITY [None]
  - HYPOAESTHESIA [None]
  - PAIN [None]
  - STRESS [None]
